FAERS Safety Report 5193098-7 (Version None)
Quarter: 2006Q4

REPORT INFORMATION
  Report Type: 
  Country: None (occurrence: None)
  Receive Date: 20061228
  Receipt Date: 20060425
  Transmission Date: 20070319
  Serious: No
  Sender: FDA-Public Use
  Company Number: US-GLAXOSMITHKLINE-A0603228A

PATIENT
  Age: 72 Year
  Sex: Male

DRUGS (16)
  1. AVODART [Suspect]
     Indication: BENIGN PROSTATIC HYPERPLASIA
     Dosage: .5MG PER DAY
     Route: 048
     Dates: start: 20051001
  2. LANTUS [Concomitant]
  3. HUMALOG [Concomitant]
  4. GLIPIZIDE [Concomitant]
  5. ALLOPURINOL SODIUM [Concomitant]
  6. FUROSEMIDE [Concomitant]
  7. DOXAZOSIN MESYLATE [Concomitant]
  8. FOLIC ACID [Concomitant]
  9. LISINOPRIL [Concomitant]
  10. CARDIZEM [Concomitant]
  11. LESCOL [Concomitant]
  12. PLAVIX [Concomitant]
  13. ZETIA [Concomitant]
  14. TOPROL-XL [Concomitant]
  15. CALCITRIOL [Concomitant]
  16. ASPIRIN [Concomitant]

REACTIONS (3)
  - DRUG INEFFECTIVE [None]
  - GENITAL RASH [None]
  - HAEMORRHOIDS [None]
